FAERS Safety Report 14639595 (Version 5)
Quarter: 2018Q2

REPORT INFORMATION
  Report Type: Spontaneous
  Country: DE (occurrence: DE)
  Receive Date: 20180315
  Receipt Date: 20180425
  Transmission Date: 20180711
  Serious: Yes (Hospitalization, Other)
  Sender: FDA-Public Use
  Company Number: DE-BRISTOL-MYERS SQUIBB COMPANY-BMS-2018-022569

PATIENT
  Age: 55 Year
  Sex: Male
  Weight: 88 kg

DRUGS (4)
  1. ACETYLSALICYLIC ACID [Concomitant]
     Active Substance: ASPIRIN
     Indication: PRODUCT USED FOR UNKNOWN INDICATION
     Route: 065
  2. PANTOPRAZOLE [Concomitant]
     Active Substance: PANTOPRAZOLE
     Indication: PRODUCT USED FOR UNKNOWN INDICATION
     Dosage: UNK
     Route: 065
  3. SIMVASTATIN. [Concomitant]
     Active Substance: SIMVASTATIN
     Indication: PRODUCT USED FOR UNKNOWN INDICATION
     Dosage: UNK
     Route: 065
  4. OPDIVO [Suspect]
     Active Substance: NIVOLUMAB
     Indication: MALIGNANT MELANOMA
     Dosage: UNK UNK, QWK
     Route: 042
     Dates: start: 20150828, end: 201803

REACTIONS (18)
  - Metastases to meninges [Unknown]
  - Abscess [Unknown]
  - Weight decreased [Unknown]
  - Dizziness [Unknown]
  - Tinnitus [Unknown]
  - Vestibular disorder [Not Recovered/Not Resolved]
  - Pallor [Unknown]
  - Nystagmus [Unknown]
  - Hepatic steatosis [Unknown]
  - Blood pressure systolic increased [Unknown]
  - Reactive gastropathy [Unknown]
  - Malignant neoplasm progression [Unknown]
  - Mucosal discolouration [Unknown]
  - Nausea [Not Recovered/Not Resolved]
  - Neuritis [Unknown]
  - Vomiting [Not Recovered/Not Resolved]
  - Mitral valve incompetence [Unknown]
  - Hiatus hernia [Unknown]

NARRATIVE: CASE EVENT DATE: 20180206
